FAERS Safety Report 11395335 (Version 1)
Quarter: 2015Q3

REPORT INFORMATION
  Report Type: Spontaneous
  Country: US (occurrence: None)
  Receive Date: 20150817
  Receipt Date: 20150817
  Transmission Date: 20151125
  Serious: Yes (Hospitalization)
  Sender: FDA-Public Use
  Company Number: None

PATIENT
  Age: 59 Year
  Sex: Female
  Weight: 62.7 kg

DRUGS (11)
  1. MORPHINE [Concomitant]
     Active Substance: MORPHINE
  2. POLYETHYLENE GLYCOL [Concomitant]
     Active Substance: POLYETHYLENE GLYCOLS
  3. OMEPRAZOLE. [Concomitant]
     Active Substance: OMEPRAZOLE
  4. TIOTROPIUM [Concomitant]
     Active Substance: TIOTROPIUM
  5. AMOXICILLIN CLAVULANATE [Concomitant]
     Active Substance: AMOXICILLIN\CLAVULANIC ACID
  6. POTASSIUM CHLORIDE SR [Concomitant]
  7. LENALIDOMIDE 10 MG, CELGENE [Suspect]
     Active Substance: LENALIDOMIDE
     Indication: PLASMA CELL MYELOMA
     Route: 048
     Dates: start: 20150715, end: 20150717
  8. CALCIUM [Concomitant]
     Active Substance: CALCIUM
  9. PROCHLORPERAZINE. [Concomitant]
     Active Substance: PROCHLORPERAZINE
  10. ALBUTEROL. [Concomitant]
     Active Substance: ALBUTEROL
  11. TRIAMCINOLONE ACETONIDE. [Concomitant]
     Active Substance: TRIAMCINOLONE ACETONIDE

REACTIONS (8)
  - Back pain [None]
  - Metastatic neoplasm [None]
  - Mass [None]
  - Dyspnoea [None]
  - Plasma cell myeloma [None]
  - Pulmonary mass [None]
  - Hypoxia [None]
  - Disease recurrence [None]

NARRATIVE: CASE EVENT DATE: 20150812
